FAERS Safety Report 13453568 (Version 1)
Quarter: 2017Q2

REPORT INFORMATION
  Report Type: Spontaneous
  Country: US (occurrence: US)
  Receive Date: 20170418
  Receipt Date: 20170418
  Transmission Date: 20170830
  Serious: No
  Sender: FDA-Public Use
  Company Number: US-ALLERGAN-1663439US

PATIENT
  Sex: Female

DRUGS (2)
  1. LATISSE [Suspect]
     Active Substance: BIMATOPROST
     Indication: GROWTH OF EYELASHES
     Dosage: UNK
     Route: 061
     Dates: start: 2011
  2. LATISSE [Suspect]
     Active Substance: BIMATOPROST
     Dosage: 3 GTT, QHS
     Route: 061
     Dates: start: 201606

REACTIONS (5)
  - Erythema of eyelid [Unknown]
  - Eyelid exfoliation [Unknown]
  - Wrong technique in product usage process [Unknown]
  - Drug ineffective [Unknown]
  - Keratomileusis [Unknown]
